FAERS Safety Report 4455900-3 (Version None)
Quarter: 2004Q3

REPORT INFORMATION
  Report Type: 
  Country: None (occurrence: None)
  Receive Date: 20040920
  Receipt Date: 20040907
  Transmission Date: 20050211
  Serious: Yes (Hospitalization)
  Sender: FDA-Public Use
  Company Number: 2004IM000849

PATIENT
  Age: 80 Year
  Sex: Female
  Weight: 73.4827 kg

DRUGS (4)
  1. ACTIMMUNE [Suspect]
     Indication: OVARIAN CANCER
     Dosage: 100 UG; TIW; SUBCUTANEOUS
     Route: 058
     Dates: start: 20020503, end: 20020522
  2. CARBOPLATIN [Suspect]
     Indication: OVARIAN CANCER
     Dosage: 450 MG; Q3W; INTRAVENOUS
     Route: 042
     Dates: start: 20020503, end: 20020503
  3. PACLITAXEL [Suspect]
     Indication: OVARIAN CANCER
     Dosage: 310 MG; Q3W; INTRAVENOUS
     Route: 042
     Dates: start: 20020503, end: 20020503
  4. DURAGESIC [Concomitant]

REACTIONS (1)
  - ANAEMIA [None]
